FAERS Safety Report 20556481 (Version 2)
Quarter: 2022Q1

REPORT INFORMATION
  Report Type: Report from Study
  Country: US (occurrence: US)
  Receive Date: 20220307
  Receipt Date: 20220311
  Transmission Date: 20220424
  Serious: No
  Sender: FDA-Public Use
  Company Number: US-NOVARTISTESTPH-NVSC2022US052718

PATIENT
  Sex: Female

DRUGS (6)
  1. KISQALI [Suspect]
     Active Substance: RIBOCICLIB
     Indication: Neoplasm malignant
     Dosage: 200 MG, QD
     Route: 048
  2. FLUTICASONE [Concomitant]
     Active Substance: FLUTICASONE
     Indication: Product used for unknown indication
     Dosage: UNK (TAKE 3 TABLETS BY MOUTH DAILY IN THE MORNING FOR 21 DAYS ON. 7 DAYS OFF BEGIN 7 DAYS AFTER LAST
     Route: 065
  3. MAGNESIUM [Concomitant]
     Active Substance: MAGNESIUM
     Indication: Product used for unknown indication
     Dosage: UNK (TAKE 3 TABLETS BY MOUTH DAILY IN THE MORNING FOR 21 DAYS ON. 7 DAYS OFF BEGIN 7 DAYS AFTER LAST
     Route: 065
  4. OMEGA 3 [Concomitant]
     Active Substance: CAPSAICIN
     Indication: Product used for unknown indication
     Dosage: UNK (TAKE 3 TABLETS BY MOUTH DAILY IN THE MORNING FOR 21 DAYS ON. 7 DAYS OFF BEGIN 7 DAYS AFTER LAST
     Route: 065
  5. LETROZOLE [Concomitant]
     Active Substance: LETROZOLE
     Indication: Product used for unknown indication
     Dosage: UNK (TAKE 3 TABLETS BY MOUTH DAILY IN THE MORNING FOR 21 DAYS ON. 7 DAYS OFF BEGIN 7 DAYS AFTER LAST
     Route: 065
  6. LISINOPRIL [Concomitant]
     Active Substance: LISINOPRIL
     Indication: Product used for unknown indication
     Dosage: UNK (TAKE 3 TABLETS BY MOUTH DAILY IN THE MORNING FOR 21 DAYS ON. 7 DAYS OFF BEGIN 7 DAYS AFTER LAST
     Route: 065

REACTIONS (6)
  - Insomnia [Not Recovered/Not Resolved]
  - Weight increased [Not Recovered/Not Resolved]
  - Fall [Not Recovered/Not Resolved]
  - Joint injury [Not Recovered/Not Resolved]
  - Abdominal discomfort [Not Recovered/Not Resolved]
  - Dyspepsia [Not Recovered/Not Resolved]
